FAERS Safety Report 19184710 (Version 2)
Quarter: 2021Q3

REPORT INFORMATION
  Report Type: Spontaneous
  Country: FR (occurrence: FR)
  Receive Date: 20210427
  Receipt Date: 20210707
  Transmission Date: 20211014
  Serious: Yes (Other)
  Sender: FDA-Public Use
  Company Number: FR-SUN PHARMACEUTICAL INDUSTRIES LTD-2021RR-293341

PATIENT
  Age: 17 Year
  Sex: Male

DRUGS (1)
  1. PREGABALIN. [Suspect]
     Active Substance: PREGABALIN
     Indication: DRUG DEPENDENCE
     Dosage: 300 MILLIGRAM, DAILY
     Route: 048
     Dates: start: 20210115, end: 20210216

REACTIONS (3)
  - Drug dependence [Not Recovered/Not Resolved]
  - Withdrawal syndrome [Recovered/Resolved]
  - Intentional product misuse [Not Recovered/Not Resolved]

NARRATIVE: CASE EVENT DATE: 20210115
